FAERS Safety Report 14213643 (Version 2)
Quarter: 2017Q4

REPORT INFORMATION
  Report Type: Report from Study
  Country: TR (occurrence: TR)
  Receive Date: 20171122
  Receipt Date: 20171211
  Transmission Date: 20180321
  Serious: Yes (Hospitalization)
  Sender: FDA-Public Use
  Company Number: TR-TAIHO ONCOLOGY INC-US-2017-00301

PATIENT
  Age: 59 Year
  Sex: Male

DRUGS (12)
  1. METOCLOPRAMIDE HYDROCHLORIDE. [Concomitant]
     Active Substance: METOCLOPRAMIDE HYDROCHLORIDE
     Indication: GASTROINTESTINAL HAEMORRHAGE
     Dates: start: 20171026, end: 20171026
  2. NOREPINEPHRINE BITARTRATE. [Concomitant]
     Active Substance: NOREPINEPHRINE BITARTRATE
     Indication: GASTROINTESTINAL HAEMORRHAGE
     Dates: start: 20171101, end: 20171101
  3. MEGESTROL ACETATE. [Concomitant]
     Active Substance: MEGESTROL ACETATE
     Indication: DECREASED APPETITE
     Dates: start: 20170810
  4. PHENIRAMINE MALEATE [Concomitant]
     Active Substance: PHENIRAMINE MALEATE
     Indication: GASTROINTESTINAL HAEMORRHAGE
     Dates: start: 20171028, end: 20171028
  5. TRAMADOL HYDROCHLORIDE. [Concomitant]
     Active Substance: TRAMADOL HYDROCHLORIDE
     Indication: ABDOMINAL PAIN
     Dates: start: 20170915
  6. PANTOPRAZOLE SODIUM SESQUIHYDRATE [Concomitant]
     Active Substance: PANTOPRAZOLE SODIUM
     Indication: GASTROINTESTINAL HAEMORRHAGE
     Dates: start: 20171029, end: 20171029
  7. TAS-102 [Suspect]
     Active Substance: TIPIRACIL HYDROCHLORIDE\TRIFLURIDINE
     Indication: ADENOCARCINOMA GASTRIC
     Dosage: CURRENT CYCLE 1
     Route: 048
     Dates: start: 20171019, end: 20171022
  8. DOPAMINE HYDROCHLORIDE. [Concomitant]
     Active Substance: DOPAMINE HYDROCHLORIDE
     Indication: GASTROINTESTINAL HAEMORRHAGE
     Dates: start: 20171102, end: 20171102
  9. TRAMADOL HYDROCHLORIDE. [Concomitant]
     Active Substance: TRAMADOL HYDROCHLORIDE
     Indication: GASTROINTESTINAL HAEMORRHAGE
     Dates: start: 20171028, end: 20171028
  10. METHYLPREDNISOLONE/SUCCINATE SODIUM [Concomitant]
     Indication: GASTROINTESTINAL HAEMORRHAGE
     Dates: start: 20171030, end: 20171030
  11. PANCREATIN [Concomitant]
     Active Substance: PANCRELIPASE
     Indication: DECREASED APPETITE
     Dates: start: 20170810
  12. ALBUMIN HUMAN [Concomitant]
     Active Substance: ALBUMIN HUMAN
     Indication: GASTROINTESTINAL HAEMORRHAGE
     Dates: start: 20171024, end: 20171024

REACTIONS (1)
  - Pulmonary embolism [Recovered/Resolved]

NARRATIVE: CASE EVENT DATE: 20171109
